FAERS Safety Report 8372988-8 (Version None)
Quarter: 2012Q2

REPORT INFORMATION
  Report Type: 
  Country: None (occurrence: None)
  Receive Date: 20120521
  Receipt Date: 20110923
  Transmission Date: 20120825
  Serious: No
  Sender: FDA-Public Use
  Company Number: US-ASTRAZENECA-2011SE65111

PATIENT
  Sex: Male

DRUGS (1)
  1. PRILOSEC OTC [Suspect]
     Dosage: UNKNOWN
     Route: 048

REACTIONS (5)
  - FEELING ABNORMAL [None]
  - MUSCLE SPASMS [None]
  - DISTURBANCE IN ATTENTION [None]
  - MUSCLE TWITCHING [None]
  - DIZZINESS [None]
